FAERS Safety Report 11998256 (Version 1)
Quarter: 2016Q1

REPORT INFORMATION
  Report Type: Report from Study
  Country: US (occurrence: US)
  Receive Date: 20160203
  Receipt Date: 20160203
  Transmission Date: 20160526
  Serious: Yes (Other)
  Sender: FDA-Public Use
  Company Number: US-BIOGEN-2007BI026897

PATIENT
  Sex: Female

DRUGS (4)
  1. AVONEX [Suspect]
     Active Substance: INTERFERON BETA-1A
     Route: 065
     Dates: end: 20071107
  2. AVONEX [Suspect]
     Active Substance: INTERFERON BETA-1A
     Indication: MULTIPLE SCLEROSIS
     Route: 030
     Dates: start: 1999, end: 2003
  3. AVONEX [Suspect]
     Active Substance: INTERFERON BETA-1A
     Route: 065
     Dates: start: 19990215
  4. AVONEX [Suspect]
     Active Substance: INTERFERON BETA-1A
     Route: 030
     Dates: start: 2003, end: 200605

REACTIONS (1)
  - Abortion spontaneous [Recovered/Resolved]

NARRATIVE: CASE EVENT DATE: 2005
